APPROVED DRUG PRODUCT: ALBUTEROL SULFATE AND IPRATROPIUM BROMIDE
Active Ingredient: ALBUTEROL SULFATE; IPRATROPIUM BROMIDE
Strength: EQ 0.083% BASE;0.017%
Dosage Form/Route: SOLUTION;INHALATION
Application: A076724 | Product #001
Applicant: TEVA PHARMACEUTICALS USA
Approved: Dec 31, 2007 | RLD: No | RS: No | Type: DISCN